FAERS Safety Report 5979855-5 (Version None)
Quarter: 2008Q4

REPORT INFORMATION
  Report Type: 
  Country: None (occurrence: None)
  Receive Date: 20081205
  Receipt Date: 20081201
  Transmission Date: 20090506
  Serious: Yes (Hospitalization)
  Sender: FDA-Public Use
  Company Number: US-BIOGENIDEC-2006BI013903

PATIENT
  Age: 41 Year
  Sex: Female

DRUGS (2)
  1. AVONEX [Suspect]
     Indication: MULTIPLE SCLEROSIS
     Route: 030
     Dates: start: 20021101, end: 20030101
  2. AVONEX [Suspect]
     Route: 030
     Dates: start: 20030701, end: 20050801

REACTIONS (3)
  - COLON CANCER [None]
  - DRUG SPECIFIC ANTIBODY PRESENT [None]
  - GASTROINTESTINAL DISORDER [None]
